FAERS Safety Report 12297886 (Version 2)
Quarter: 2016Q2

REPORT INFORMATION
  Report Type: Report from Study
  Country: CA (occurrence: CA)
  Receive Date: 20160422
  Receipt Date: 20160527
  Transmission Date: 20160815
  Serious: Yes (Hospitalization)
  Sender: FDA-Public Use
  Company Number: CA-PFIZER INC-2016218480

PATIENT
  Age: 33 Year
  Sex: Male
  Weight: 98.7 kg

DRUGS (25)
  1. HYDROMORPH CONTIN [Concomitant]
     Active Substance: HYDROMORPHONE
     Indication: BONE PAIN
     Dosage: 3 MG, 2X/DAY
     Route: 048
     Dates: start: 201507, end: 20160331
  2. AREDIA [Concomitant]
     Active Substance: PAMIDRONATE DISODIUM
     Indication: METASTASES TO BONE
     Dosage: 90 MG, EVERY 4 WEEKS
     Route: 042
     Dates: start: 201511
  3. SUNITINIB MALATE. [Suspect]
     Active Substance: SUNITINIB MALATE
     Indication: PHAEOCHROMOCYTOMA
     Dosage: 50 MG, CYCLIC, 28 DAYS ON 14 DAYS OFF
     Dates: start: 20160317, end: 20160412
  4. TYLENOL [Concomitant]
     Active Substance: ACETAMINOPHEN
     Indication: BONE PAIN
     Dosage: 650 MG, EVERY 6 HOURS
     Route: 048
     Dates: start: 201507
  5. STEMETIL /00013301/ [Concomitant]
     Active Substance: PROCHLORPERAZINE
     Indication: NAUSEA
     Dosage: 10 MG, EVERY 6 HOURS
     Route: 048
     Dates: start: 20160326
  6. FENTANYL. [Concomitant]
     Active Substance: FENTANYL
     Indication: BONE PAIN
     Dosage: 75 UG, EVERY 3 HOURS
     Route: 023
     Dates: start: 20160330, end: 20160402
  7. NEURONTIN [Concomitant]
     Active Substance: GABAPENTIN
     Indication: BONE PAIN
     Dosage: 100 MG, 3X/DAY
     Route: 048
     Dates: start: 20160330
  8. DEXTROSE. [Concomitant]
     Active Substance: DEXTROSE
     Indication: DEHYDRATION
     Dosage: 20 UG, ONCE DAILY
     Route: 042
     Dates: start: 20160330, end: 20160331
  9. CALCIUM CARBONATE. [Concomitant]
     Active Substance: CALCIUM CARBONATE
     Indication: METASTASES TO BONE
     Dosage: 500 MG, 3X/DAY
     Route: 048
     Dates: start: 20160104
  10. MAXERAN [Concomitant]
     Active Substance: METOCLOPRAMIDE HYDROCHLORIDE
     Indication: NAUSEA
     Dosage: 10 MG, EVERY 6 HOURS
     Route: 048
     Dates: start: 20160331
  11. COLACE [Concomitant]
     Active Substance: DOCUSATE SODIUM
     Indication: CONSTIPATION
     Dosage: 100 MG, 2X/DAY
     Route: 048
     Dates: start: 201507
  12. SENOKOT /00571901/ [Concomitant]
     Active Substance: SENNOSIDES A AND B
     Indication: CONSTIPATION
     Dosage: 36 MG, 2X/DAY
     Route: 048
     Dates: start: 201507
  13. TERAZOSIN [Concomitant]
     Active Substance: TERAZOSIN\TERAZOSIN HYDROCHLORIDE
     Indication: HYPERTENSION
     Dosage: 4 MG, 2X/DAY
     Route: 048
     Dates: start: 2008
  14. LYRICA [Concomitant]
     Active Substance: PREGABALIN
     Indication: BONE PAIN
     Dosage: 25 MG, 2X/DAY
     Route: 048
     Dates: start: 20160315, end: 20160330
  15. ATENOLOL. [Concomitant]
     Active Substance: ATENOLOL
     Indication: HYPERTENSION
     Dosage: 12.5 MG, 2X/DAY
     Route: 048
     Dates: start: 2008
  16. UREMOL [Concomitant]
     Indication: PROPHYLAXIS
     Dosage: 20%, 2X/DAY
     Route: 061
     Dates: start: 20160318
  17. HEPARIN [Concomitant]
     Active Substance: HEPARIN SODIUM
     Indication: PROPHYLAXIS
     Dosage: 5000 IU, EVERY 12 HOURS
     Route: 058
     Dates: start: 20160330, end: 20160331
  18. LAX-A-DAY [Concomitant]
     Indication: CONSTIPATION
     Dosage: 1 DF (BAG), UNK
     Route: 048
     Dates: start: 201507
  19. ESOMEPRAZOLE [Concomitant]
     Active Substance: ESOMEPRAZOLE
     Indication: GASTROOESOPHAGEAL REFLUX DISEASE
     Dosage: 40 MG, 1X/DAY
     Route: 048
     Dates: start: 201504
  20. ATIVAN [Concomitant]
     Active Substance: LORAZEPAM
     Indication: INSOMNIA
     Dosage: 1 MG, EVERY NIGHT
     Route: 048
     Dates: start: 20151217
  21. DILAUDID [Concomitant]
     Active Substance: HYDROMORPHONE HYDROCHLORIDE
     Indication: BONE PAIN
     Dosage: 2 MG, EVERY 3 HOURS
     Route: 048
     Dates: start: 201507, end: 20160331
  22. NAPROSYN [Concomitant]
     Active Substance: NAPROXEN
     Indication: BONE PAIN
     Dosage: 500 MG, 2X/DAY
     Route: 048
     Dates: start: 201507, end: 20160404
  23. ZYPREXA [Concomitant]
     Active Substance: OLANZAPINE
     Indication: ANXIETY
     Dosage: 2.5 MG, EVERY NIGHT
     Route: 048
     Dates: start: 20151217
  24. METOCLOPRAMIDE. [Concomitant]
     Active Substance: METOCLOPRAMIDE
     Indication: NAUSEA
     Dosage: 25 MG, EVERY 4 HOURS
     Route: 042
     Dates: start: 20160330
  25. MORPHINE [Concomitant]
     Active Substance: MORPHINE
     Indication: BONE PAIN
     Dosage: 10 MG, EVERY 2 HOURS
     Route: 048
     Dates: start: 20160331, end: 20160402

REACTIONS (1)
  - Confusional state [Not Recovered/Not Resolved]

NARRATIVE: CASE EVENT DATE: 20160404
